FAERS Safety Report 5377706-3 (Version None)
Quarter: 2007Q3

REPORT INFORMATION
  Report Type: 
  Country: None (occurrence: None)
  Receive Date: 20070703
  Receipt Date: 20070625
  Transmission Date: 20080115
  Serious: Yes (Other)
  Sender: FDA-Public Use
  Company Number: AU-ROXANE LABORATORIES, INC-2007-BP-15849RO

PATIENT
  Age: 6 Year
  Sex: Male

DRUGS (4)
  1. CYCLOPHOSPHAMIDE [Suspect]
     Indication: CHEMOTHERAPY
  2. VINCRISTINE [Suspect]
     Indication: CHEMOTHERAPY
  3. PREDNISOLONE [Suspect]
     Indication: CHEMOTHERAPY
  4. TRIMETHOPRIM-SULPHAMETHOXAZOLE [Concomitant]
     Route: 048

REACTIONS (2)
  - RASH PAPULAR [None]
  - VIRAL INFECTION [None]
